FAERS Safety Report 24140984 (Version 2)
Quarter: 2024Q3

REPORT INFORMATION
  Report Type: Spontaneous
  Country: FR (occurrence: FR)
  Receive Date: 20240726
  Receipt Date: 20240823
  Transmission Date: 20241017
  Serious: Yes (Death, Other)
  Sender: ROCHE
  Company Number: FR-ROCHE-10000021227

PATIENT
  Age: 71 Year
  Sex: Male
  Weight: 78 kg

DRUGS (1)
  1. COLUMVI [Suspect]
     Active Substance: GLOFITAMAB-GXBM
     Indication: B-cell lymphoma
     Route: 042
     Dates: start: 20231024, end: 20240507

REACTIONS (6)
  - Neurotoxicity [Fatal]
  - Confusional state [Fatal]
  - Pyrexia [Fatal]
  - COVID-19 [Unknown]
  - Cerebellar ischaemia [Unknown]
  - Pneumonia [Unknown]

NARRATIVE: CASE EVENT DATE: 20240618
